FAERS Safety Report 24850929 (Version 1)
Quarter: 2025Q1

REPORT INFORMATION
  Report Type: Spontaneous
  Country: US (occurrence: US)
  Receive Date: 20250116
  Receipt Date: 20250116
  Transmission Date: 20250408
  Serious: No
  Sender: GALDERMA
  Company Number: US-GALDERMA-US2024007997

PATIENT
  Sex: Female

DRUGS (2)
  1. DESONIDE [Suspect]
     Active Substance: DESONIDE
     Indication: Product used for unknown indication
     Route: 061
  2. FLEXITOL [Concomitant]
     Indication: Product used for unknown indication
     Route: 061

REACTIONS (1)
  - Rash [Unknown]
